FAERS Safety Report 6190565-4 (Version None)
Quarter: 2009Q2

REPORT INFORMATION
  Report Type: 
  Country: None (occurrence: None)
  Receive Date: 20090514
  Receipt Date: 20090507
  Transmission Date: 20091009
  Serious: Yes (Other)
  Sender: FDA-Public Use
  Company Number: US-GENENTECH-282768

PATIENT
  Sex: Female

DRUGS (2)
  1. AVASTIN [Suspect]
     Indication: MACULAR OEDEMA
     Dosage: 1.25 MG, 1/MONTH
     Route: 031
  2. AVASTIN [Suspect]
     Dosage: 1.25 MG, Q2W
     Route: 031

REACTIONS (2)
  - CONDITION AGGRAVATED [None]
  - MACULAR OEDEMA [None]
